FAERS Safety Report 14828931 (Version 3)
Quarter: 2018Q3

REPORT INFORMATION
  Report Type: Spontaneous
  Country: JP (occurrence: JP)
  Receive Date: 20180430
  Receipt Date: 20180719
  Transmission Date: 20181010
  Serious: No
  Sender: FDA-Public Use
  Company Number: JP-ELI_LILLY_AND_COMPANY-JP201804012661

PATIENT
  Age: 67 Year
  Sex: Male

DRUGS (20)
  1. MITIGLINIDE [Concomitant]
     Active Substance: MITIGLINIDE
     Route: 048
  2. EPPIKAJUTSUTO [Concomitant]
     Dosage: 7.5 G, DAILY
     Route: 048
     Dates: start: 20180407
  3. AMLODIPINE [Concomitant]
     Active Substance: AMLODIPINE BESYLATE
     Route: 048
  4. DOMPERIDONE [Concomitant]
     Active Substance: DOMPERIDONE
  5. DULOXETINE HYDROCHLORIDE. [Suspect]
     Active Substance: DULOXETINE HYDROCHLORIDE
     Dosage: 40 MG, DAILY
     Route: 048
     Dates: start: 20180421, end: 20180424
  6. WARFARIN [Suspect]
     Active Substance: WARFARIN
     Indication: PRODUCT USED FOR UNKNOWN INDICATION
     Dosage: UNK
     Route: 048
     Dates: end: 20180424
  7. REBAMIPIDE [Concomitant]
     Active Substance: REBAMIPIDE
     Dosage: 100 MG, PRN
     Route: 048
     Dates: start: 20180407
  8. METFORMIN [Concomitant]
     Active Substance: METFORMIN HYDROCHLORIDE
     Route: 048
  9. XYZAL [Concomitant]
     Active Substance: LEVOCETIRIZINE DIHYDROCHLORIDE
  10. TRESIBA [Concomitant]
     Active Substance: INSULIN DEGLUDEC
     Route: 058
  11. PIOGLITAZONE. [Concomitant]
     Active Substance: PIOGLITAZONE
  12. FAMOTIDINE. [Concomitant]
     Active Substance: FAMOTIDINE
     Route: 048
  13. DULOXETINE HYDROCHLORIDE. [Suspect]
     Active Substance: DULOXETINE HYDROCHLORIDE
     Indication: DIABETIC NEUROPATHY
     Dosage: 20 MG, DAILY
     Route: 048
     Dates: start: 20180407, end: 20180420
  14. LOXONIN [Concomitant]
     Active Substance: LOXOPROFEN SODIUM
     Dosage: 60 MG, PRN
     Route: 048
     Dates: start: 20180407
  15. ROSUVASTATIN. [Concomitant]
     Active Substance: ROSUVASTATIN
  16. HALFDIGOXIN KY [Concomitant]
  17. VICTOZA [Concomitant]
     Active Substance: LIRAGLUTIDE
     Route: 058
  18. BEZAFIBRATE [Concomitant]
     Active Substance: BEZAFIBRATE
     Route: 048
  19. VALSARTAN. [Concomitant]
     Active Substance: VALSARTAN
  20. TERPERAN [Concomitant]
     Active Substance: METOCLOPRAMIDE HYDROCHLORIDE
     Dosage: 15 MG, DAILY
     Route: 048
     Dates: start: 20180407, end: 20180421

REACTIONS (1)
  - International normalised ratio increased [Recovered/Resolved]

NARRATIVE: CASE EVENT DATE: 20180421
